FAERS Safety Report 5082564-0 (Version None)
Quarter: 2006Q3

REPORT INFORMATION
  Report Type: 
  Country: None (occurrence: None)
  Receive Date: 20060814
  Receipt Date: 20060801
  Transmission Date: 20061208
  Serious: Yes (Other)
  Sender: FDA-Public Use
  Company Number: 14525

PATIENT
  Age: 70 Year
  Sex: Male

DRUGS (10)
  1. FLUOROURACIL [Suspect]
     Indication: COLORECTAL CANCER
     Dosage: 400 MG/M2 FORTNIGHTLY PU
     Dates: start: 20060425, end: 20060509
  2. FLUOROURACIL [Suspect]
     Indication: COLORECTAL CANCER
     Dosage: 2400 MG/M2 FORTNIGHTLY IV
     Route: 042
     Dates: start: 20060425, end: 20060509
  3. OXALIPLATIN [Suspect]
     Indication: COLORECTAL CANCER
     Dosage: 85 MG/M2 FORTNIGHTLY IV
     Route: 042
     Dates: start: 20060425, end: 20060509
  4. LEUCOVORIN CALCIUM [Suspect]
     Indication: COLORECTAL CANCER
     Dosage: 400 MG/M2 FORTNIGHTLY IV
     Route: 042
     Dates: start: 20060425, end: 20060509
  5. AVASTIN [Suspect]
     Indication: COLORECTAL CANCER
     Dosage: 5 MG/KG M2 FORTNIGHTLY IV
     Route: 042
     Dates: start: 20060425, end: 20060509
  6. ERBITUX [Suspect]
     Indication: COLORECTAL CANCER
     Dosage: 400 MG/M2 WEEKLY IV
     Route: 042
     Dates: start: 20060425, end: 20060425
  7. ERBITUX [Suspect]
     Indication: COLORECTAL CANCER
     Dosage: 250 MG/M2 WEEKLY IV
     Route: 042
     Dates: start: 20060502, end: 20060516
  8. ATORVASTATIN CALCIUM [Concomitant]
  9. MINOCYCLINE HCL [Concomitant]
  10. METOPROLOL SUCCINATE [Concomitant]

REACTIONS (2)
  - GRANULOCYTE COUNT DECREASED [None]
  - NEUTROPHIL COUNT DECREASED [None]
